FAERS Safety Report 6997785-7 (Version None)
Quarter: 2010Q3

REPORT INFORMATION
  Report Type: 
  Country: None (occurrence: None)
  Receive Date: 20100920
  Receipt Date: 20100908
  Transmission Date: 20110219
  Serious: Yes (Hospitalization)
  Sender: FDA-Public Use
  Company Number: US-BIOGENIDEC-2010BI031321

PATIENT
  Age: 50 Year
  Sex: Male
  Weight: 136 kg

DRUGS (1)
  1. TYSABRI [Suspect]
     Indication: MULTIPLE SCLEROSIS
     Route: 042
     Dates: start: 20100101, end: 20100401

REACTIONS (8)
  - ABASIA [None]
  - ABDOMINAL PAIN [None]
  - ASTHENIA [None]
  - FEELING ABNORMAL [None]
  - MALAISE [None]
  - NEPHROLITHIASIS [None]
  - SYNCOPE [None]
  - URINARY TRACT INFECTION [None]
